FAERS Safety Report 11661724 (Version 1)
Quarter: 2015Q4

REPORT INFORMATION
  Report Type: Spontaneous
  Country: US (occurrence: US)
  Receive Date: 20151026
  Receipt Date: 20151026
  Transmission Date: 20160304
  Serious: No
  Sender: FDA-Public Use
  Company Number: US-BAUSCH-BL-2015-017522

PATIENT
  Sex: Male
  Weight: 108.96 kg

DRUGS (6)
  1. ATIVAN [Suspect]
     Active Substance: LORAZEPAM
     Indication: ASPERGER^S DISORDER
     Route: 048
  2. DEPAKOTE [Concomitant]
     Active Substance: DIVALPROEX SODIUM
     Indication: PRODUCT USED FOR UNKNOWN INDICATION
     Dosage: FIRST DOSE
     Route: 048
  3. DEPAKOTE [Concomitant]
     Active Substance: DIVALPROEX SODIUM
     Route: 048
  4. RISPERDAL [Concomitant]
     Active Substance: RISPERIDONE
     Route: 048
     Dates: start: 1995
  5. RISPERDAL [Concomitant]
     Active Substance: RISPERIDONE
     Indication: ASPERGER^S DISORDER
     Dosage: FIRST DOSE
     Route: 048
     Dates: start: 1995
  6. BENZOTROPINE [Concomitant]
     Active Substance: BENZTROPINE
     Indication: TIC
     Route: 048

REACTIONS (2)
  - Asocial behaviour [Recovered/Resolved]
  - Soliloquy [Recovered/Resolved]
